FAERS Safety Report 13769971 (Version 3)
Quarter: 2017Q3

REPORT INFORMATION
  Report Type: Report from Study
  Country: KR (occurrence: KR)
  Receive Date: 20170719
  Receipt Date: 20170920
  Transmission Date: 20171127
  Serious: Yes (Hospitalization)
  Sender: FDA-Public Use
  Company Number: KR-DSJP-DSJ-2017-123956

PATIENT

DRUGS (7)
  1. URSA [Concomitant]
     Indication: LIVER DISORDER
     Dosage: 100 MG, TID
     Route: 048
     Dates: start: 20150505
  2. URSA [Concomitant]
     Indication: ASPARTATE AMINOTRANSFERASE INCREASED
  3. METFORMIN [Concomitant]
     Active Substance: METFORMIN HYDROCHLORIDE
     Indication: DIABETES MELLITUS
     Dosage: 500 MG, QD
     Route: 048
     Dates: start: 20150105, end: 20161010
  4. XARELTO [Concomitant]
     Active Substance: RIVAROXABAN
     Indication: ATRIAL FIBRILLATION
     Dosage: 20 MG, QD
     Route: 048
     Dates: start: 20151102
  5. CURAN [Concomitant]
     Active Substance: RANITIDINE HYDROCHLORIDE
     Indication: GASTRITIS PROPHYLAXIS
     Dosage: 150 MG, QD
     Route: 048
     Dates: start: 20150105, end: 20161010
  6. OLMESARTAN AMLODIPINE HYDROCHLOROTHIAZIDE [Suspect]
     Active Substance: AMLODIPINE\HYDROCHLOROTHIAZIDE\OLMESARTAN
     Indication: HYPERTENSION
     Dosage: 20/5/12.5MG, QD
     Route: 048
     Dates: start: 20160719, end: 20170531
  7. RANIBIG [Concomitant]
     Indication: DIABETES MELLITUS
     Dosage: 150 MG, QD
     Route: 048
     Dates: start: 20161011

REACTIONS (4)
  - Syncope [Recovered/Resolved]
  - Cholecystitis acute [Recovering/Resolving]
  - Atrioventricular block complete [Recovered/Resolved]
  - Acute kidney injury [Recovered/Resolved]

NARRATIVE: CASE EVENT DATE: 20170601
